FAERS Safety Report 8624035-8 (Version None)
Quarter: 2012Q3

REPORT INFORMATION
  Report Type: 
  Country: None (occurrence: None)
  Receive Date: 20120824
  Receipt Date: 20120824
  Transmission Date: 20120928
  Serious: No
  Sender: FDA-Public Use
  Company Number: None

PATIENT
  Sex: Male
  Weight: 131.5431 kg

DRUGS (1)
  1. LEVOFLOXACIN [Suspect]
     Indication: DIVERTICULITIS
     Dosage: ONE DAILY
     Dates: start: 20120107, end: 20120108

REACTIONS (3)
  - RHABDOMYOLYSIS [None]
  - MYOSITIS [None]
  - MYALGIA [None]
